FAERS Safety Report 5227327-8 (Version None)
Quarter: 2007Q1

REPORT INFORMATION
  Report Type: 
  Country: None (occurrence: None)
  Receive Date: 20070202
  Receipt Date: 20070130
  Transmission Date: 20070707
  Serious: Yes (Hospitalization)
  Sender: FDA-Public Use
  Company Number: JP-MERCK-0701USA04991

PATIENT

DRUGS (1)
  1. DECADRON [Suspect]
     Route: 048
     Dates: start: 20050101

REACTIONS (1)
  - ASTHMA [None]
